FAERS Safety Report 22819185 (Version 2)
Quarter: 2024Q1

REPORT INFORMATION
  Report Type: Report from Study
  Country: CO (occurrence: CO)
  Receive Date: 20230814
  Receipt Date: 20240318
  Transmission Date: 20240409
  Serious: Yes (Death, Life-Threatening, Hospitalization, Other)
  Sender: FDA-Public Use
  Company Number: CO-ABBVIE-5365063

PATIENT
  Age: 78 Year
  Sex: Male
  Weight: 59 kg

DRUGS (2)
  1. VENCLEXTA [Suspect]
     Active Substance: VENETOCLAX
     Indication: Acute myeloid leukaemia
     Dosage: FORM STRENGTH: 100 MILLIGRAM
     Route: 048
     Dates: start: 20230118, end: 20230802
  2. VENCLEXTA [Suspect]
     Active Substance: VENETOCLAX
     Indication: Acute myeloid leukaemia
     Dosage: STRENGTH: 100 MG
     Route: 048
     Dates: end: 20240302

REACTIONS (15)
  - Death [Fatal]
  - Cough [Recovering/Resolving]
  - Asphyxia [Recovering/Resolving]
  - Discomfort [Recovering/Resolving]
  - Malaise [Recovering/Resolving]
  - Chronic obstructive pulmonary disease [Not Recovered/Not Resolved]
  - Platelet count decreased [Unknown]
  - Dyspnoea [Recovering/Resolving]
  - Acute myeloid leukaemia [Unknown]
  - Pneumonia [Recovering/Resolving]
  - Traumatic lung injury [Unknown]
  - Feeling abnormal [Unknown]
  - Renal failure [Unknown]
  - Pain [Not Recovered/Not Resolved]
  - Immunodeficiency [Unknown]

NARRATIVE: CASE EVENT DATE: 20230801
